FAERS Safety Report 8198747-7 (Version None)
Quarter: 2012Q1

REPORT INFORMATION
  Report Type: 
  Country: None (occurrence: None)
  Receive Date: 20120309
  Receipt Date: 20120301
  Transmission Date: 20120608
  Serious: Yes (Other)
  Sender: FDA-Public Use
  Company Number: CA-ROCHE-GNE305627

PATIENT
  Sex: Male

DRUGS (3)
  1. SINUS MEDICATION [Concomitant]
     Indication: PRODUCT USED FOR UNKNOWN INDICATION
  2. XOLAIR [Suspect]
     Indication: ASTHMA
     Dosage: 375 MG, Q4W
     Route: 058
     Dates: start: 20091007
  3. PULMICORT [Concomitant]
     Indication: PRODUCT USED FOR UNKNOWN INDICATION

REACTIONS (13)
  - EAR INFECTION [None]
  - SINUSITIS [None]
  - PULMONARY CONGESTION [None]
  - ORAL CANDIDIASIS [None]
  - ECCHYMOSIS [None]
  - HYPOAESTHESIA [None]
  - EAR PAIN [None]
  - RHINORRHOEA [None]
  - HYPOTHERMIA [None]
  - COUGH [None]
  - NASOPHARYNGITIS [None]
  - HYPOSMIA [None]
  - PAIN [None]
